FAERS Safety Report 6713906-5 (Version None)
Quarter: 2010Q2

REPORT INFORMATION
  Report Type: 
  Country: None (occurrence: None)
  Receive Date: 20100506
  Receipt Date: 20100427
  Transmission Date: 20101027
  Serious: Yes (Hospitalization)
  Sender: FDA-Public Use
  Company Number: US-ABBOTT-10P-163-0637398-00

PATIENT
  Sex: Male
  Weight: 54.934 kg

DRUGS (11)
  1. HUMIRA [Suspect]
     Indication: CROHN'S DISEASE
     Dosage: 160MG LOADING DOSE DAY ONE
     Dates: start: 20100330, end: 20100330
  2. HUMIRA [Suspect]
     Dosage: 80 MILLIGRAMS ON DAY 15
     Dates: start: 20100409
  3. NEXIUM [Concomitant]
     Indication: DRUG USE FOR UNKNOWN INDICATION
  4. ALPRAZOLAM [Concomitant]
     Indication: DRUG USE FOR UNKNOWN INDICATION
  5. SPIRIVA [Concomitant]
     Indication: DRUG USE FOR UNKNOWN INDICATION
  6. LEVODOPA [Concomitant]
     Indication: DRUG USE FOR UNKNOWN INDICATION
  7. NEBULIZER TREATMENTS [Concomitant]
     Indication: DRUG USE FOR UNKNOWN INDICATION
  8. MIRALAX [Concomitant]
     Indication: DRUG USE FOR UNKNOWN INDICATION
     Dosage: DAILY
  9. PERCOCET [Concomitant]
     Indication: DRUG USE FOR UNKNOWN INDICATION
  10. ALBUTEROL [Concomitant]
     Indication: DRUG USE FOR UNKNOWN INDICATION
     Dosage: NEBULIZER PRN
  11. ALBUTEROL [Concomitant]
     Dosage: INHALER PRN
     Route: 055

REACTIONS (3)
  - ASTHENIA [None]
  - COUGH [None]
  - PNEUMONIA [None]
